FAERS Safety Report 5852867-8 (Version None)
Quarter: 2008Q3

REPORT INFORMATION
  Report Type: 
  Country: None (occurrence: None)
  Receive Date: 20080815
  Receipt Date: 20080506
  Transmission Date: 20090109
  Serious: No
  Sender: FDA-Public Use
  Company Number: 562886

PATIENT
  Age: 51 Year
  Sex: Male

DRUGS (1)
  1. CELLCEPT [Suspect]
     Indication: SYSTEMIC LUPUS ERYTHEMATOSUS
     Dosage: 2500 MG DAILY ORAL
     Route: 048
     Dates: start: 20060501

REACTIONS (1)
  - HAEMATOMA [None]
